FAERS Safety Report 7504313-6 (Version None)
Quarter: 2011Q2

REPORT INFORMATION
  Report Type: 
  Country: None (occurrence: None)
  Receive Date: 20110525
  Receipt Date: 20110510
  Transmission Date: 20111010
  Serious: Yes (Other)
  Sender: FDA-Public Use
  Company Number: US-UCBSA-024007

PATIENT
  Sex: Female
  Weight: 69.3 kg

DRUGS (16)
  1. GENERIC CLARITIN [Concomitant]
     Indication: URTICARIA
  2. FOLIC ACID [Concomitant]
     Indication: MEDICAL DIET
  3. BLACK COHOSH [Concomitant]
     Indication: HOT FLUSH
  4. PENTASA [Concomitant]
     Indication: CROHN'S DISEASE
     Dosage: 8X250 MG TABLET DIVIDED INTO 4 TIMES DAILY
     Route: 048
     Dates: start: 20000101
  5. CIMZIA [Suspect]
     Indication: CROHN'S DISEASE
     Route: 058
     Dates: start: 20101216, end: 20110207
  6. MILK THISTLE [Concomitant]
     Indication: HEPATIC FUNCTION ABNORMAL
  7. MULTIVITAMIN(GINSANA GOLD) [Concomitant]
     Indication: VITAMIN SUPPLEMENTATION
  8. ASPIRIN [Concomitant]
     Indication: ANTICOAGULANT THERAPY
     Route: 048
  9. IMODIUM [Concomitant]
     Indication: FREQUENT BOWEL MOVEMENTS
  10. POTASSIUM CHLORIDE [Concomitant]
     Indication: MINERAL SUPPLEMENTATION
  11. NEXIUM [Concomitant]
     Indication: GASTROOESOPHAGEAL REFLUX DISEASE
     Route: 048
  12. METOPROLOL TARTRATE [Concomitant]
     Indication: HYPERTENSION
     Route: 048
     Dates: start: 20040101
  13. GENERIC CLARITIN [Concomitant]
     Indication: HYPERSENSITIVITY
  14. VITAMIN B-12 [Concomitant]
     Indication: VITAMIN SUPPLEMENTATION
  15. ENTOCORT EC [Suspect]
     Indication: CROHN'S DISEASE
     Route: 048
     Dates: start: 20000101
  16. ASPIRIN [Concomitant]
     Indication: CARDIAC DISORDER
     Route: 048

REACTIONS (6)
  - BOWEL MOVEMENT IRREGULARITY [None]
  - CATARACT [None]
  - DIARRHOEA [None]
  - MIDDLE INSOMNIA [None]
  - INJECTION SITE DISCOLOURATION [None]
  - FAECES DISCOLOURED [None]
